FAERS Safety Report 9618926 (Version 10)
Quarter: 2015Q1

REPORT INFORMATION
  Report Type: Report from Study
  Country: CA (occurrence: CA)
  Receive Date: 20131014
  Receipt Date: 20150114
  Transmission Date: 20150721
  Serious: Yes (Hospitalization, Disabling, Other)
  Sender: FDA-Public Use
  Company Number: CA-BAYER-2013-109759

PATIENT
  Age: 57 Year
  Sex: Female
  Weight: 79 kg

DRUGS (22)
  1. STIVARGA [Suspect]
     Active Substance: REGORAFENIB
     Indication: COLORECTAL CANCER METASTATIC
     Dosage: ALTERNATIVE DOSE OF 40 MG AND 80 MG, QD (FOR 3 WEEKS ON AND A WEEK OFF)
     Route: 048
     Dates: start: 201403, end: 2014
  2. STIVARGA [Suspect]
     Active Substance: REGORAFENIB
     Indication: COLORECTAL CANCER METASTATIC
     Dosage: 80 MG, QD (2 WEEKS ON TREATMENT AND 1 WEEK OFF)
     Route: 048
     Dates: start: 2014
  3. PANTOPRAZOLE [Concomitant]
     Active Substance: PANTOPRAZOLE SODIUM
     Dosage: 40 MG, DAILY
  4. STIVARGA [Suspect]
     Active Substance: REGORAFENIB
     Indication: COLORECTAL CANCER METASTATIC
     Dosage: 40 MG, QD
     Route: 048
     Dates: start: 201401, end: 201403
  5. CRESTOR [Concomitant]
     Active Substance: ROSUVASTATIN CALCIUM
     Dosage: 20 MG, QD
  6. DILAUDID [Concomitant]
     Active Substance: HYDROMORPHONE HYDROCHLORIDE
     Dosage: 1 MG, PRN
  7. QUETIAPINE [Concomitant]
     Active Substance: QUETIAPINE
     Dosage: 5 MG DAILY
     Route: 048
  8. STIVARGA [Suspect]
     Active Substance: REGORAFENIB
     Indication: COLORECTAL CANCER METASTATIC
     Dosage: 120 MG, QD
     Route: 048
     Dates: start: 201309, end: 201401
  9. MINOCYCLINE [Concomitant]
     Active Substance: MINOCYCLINE\MINOCYCLINE HYDROCHLORIDE
     Dosage: 100 MG, BID
  10. STIVARGA [Suspect]
     Active Substance: REGORAFENIB
     Indication: COLORECTAL CANCER METASTATIC
     Dosage: 80 MG, QD
     Route: 048
     Dates: start: 2014, end: 2014
  11. ZOPICLONE [Concomitant]
     Active Substance: ZOPICLONE
     Dosage: 7.5 MG, QD
  12. HYDROMORPH [Concomitant]
     Active Substance: HYDROMORPHONE
     Dosage: 2 MG, PRN
     Route: 048
  13. CONTREM [Concomitant]
     Dosage: 6 MG, BID
     Route: 048
  14. FLUCONAZOLE. [Concomitant]
     Active Substance: FLUCONAZOLE
     Dosage: 100 MG
     Route: 048
  15. PANTOLOC [Concomitant]
     Active Substance: PANTOPRAZOLE SODIUM
     Dosage: 40 MG DAILY
     Route: 048
  16. SYNTHROID [Concomitant]
     Active Substance: LEVOTHYROXINE SODIUM
     Dosage: 75 ?G, UNK
     Route: 048
  17. PAROXETINE [Concomitant]
     Active Substance: PAROXETINE\PAROXETINE HYDROCHLORIDE
     Dosage: 20 MG DAILY
     Route: 048
  18. CELEBREX [Concomitant]
     Active Substance: CELECOXIB
     Dosage: 200 MG, PRN
  19. HYDROMORPH CONTIN [Concomitant]
     Active Substance: HYDROMORPHONE
     Dosage: 12 MG, BID
  20. HYDROMORPH CONTIN [Concomitant]
     Active Substance: HYDROMORPHONE
     Dosage: 3 MG, BID
  21. STIVARGA [Suspect]
     Active Substance: REGORAFENIB
     Indication: COLORECTAL CANCER METASTATIC
     Dosage: 160 MG, ONCE A DAY
     Route: 048
     Dates: start: 20130823, end: 20130919
  22. LOPERAMIDE [Concomitant]
     Active Substance: LOPERAMIDE
     Dosage: 2 MG, PRN

REACTIONS (14)
  - Skin infection [Recovering/Resolving]
  - Decreased appetite [None]
  - Pain [Recovered/Resolved]
  - Activities of daily living impaired [Recovered/Resolved]
  - Abasia [Recovered/Resolved]
  - Hepatitis [Recovered/Resolved]
  - Back pain [Recovered/Resolved]
  - Transaminases increased [Recovered/Resolved]
  - Abdominal pain [None]
  - Skin exfoliation [None]
  - Fatigue [Unknown]
  - Palmar-plantar erythrodysaesthesia syndrome [Recovering/Resolving]
  - Asthenia [None]
  - Skin exfoliation [Unknown]

NARRATIVE: CASE EVENT DATE: 201309
